FAERS Safety Report 6200317-4 (Version None)
Quarter: 2009Q2

REPORT INFORMATION
  Report Type: 
  Country: None (occurrence: None)
  Receive Date: 20090522
  Receipt Date: 20090518
  Transmission Date: 20091009
  Serious: Yes (Other)
  Sender: FDA-Public Use
  Company Number: US-JNJFOC-20090504391

PATIENT
  Sex: Female
  Weight: 65.77 kg

DRUGS (13)
  1. FENTANYL TRANSDERMAL SYSTEM [Suspect]
     Dosage: 75 MCG   50 MCG = 125 MCG
     Route: 048
  2. FENTANYL TRANSDERMAL SYSTEM [Suspect]
     Dosage: 75 MCG   50 MCG = 125 MCG
     Route: 048
  3. FENTANYL TRANSDERMAL SYSTEM [Suspect]
     Route: 048
  4. FENTANYL TRANSDERMAL SYSTEM [Suspect]
     Indication: PAIN
     Route: 048
  5. LYRICA [Suspect]
     Indication: FIBROMYALGIA
     Route: 048
  6. CHANTIX [Suspect]
     Indication: SMOKING CESSATION THERAPY
     Route: 048
  7. TRAZODONE HCL [Concomitant]
     Indication: SLEEP DISORDER THERAPY
     Dosage: BED TIME
     Route: 048
  8. GABAPENTIN [Concomitant]
     Route: 048
  9. DULOXETINE [Concomitant]
     Indication: ANTIDEPRESSANT THERAPY
     Route: 048
  10. PROZAC [Concomitant]
     Indication: DEPRESSION
     Route: 048
  11. PROVIGIL [Concomitant]
     Indication: FATIGUE
     Route: 048
  12. COLACE [Concomitant]
     Indication: CONSTIPATION
     Route: 048
  13. SENNA [Concomitant]
     Indication: CONSTIPATION
     Route: 048

REACTIONS (12)
  - DRUG DEPENDENCE [None]
  - DRUG PRESCRIBING ERROR [None]
  - HALLUCINATION, VISUAL [None]
  - INTENTIONAL DRUG MISUSE [None]
  - INTENTIONAL SELF-INJURY [None]
  - MUSCLE SPASMS [None]
  - MUSCLE TWITCHING [None]
  - PAIN [None]
  - RESTLESS LEGS SYNDROME [None]
  - TREATMENT NONCOMPLIANCE [None]
  - VISUAL FIELD DEFECT [None]
  - WITHDRAWAL SYNDROME [None]
